FAERS Safety Report 10690810 (Version 3)
Quarter: 2015Q1

REPORT INFORMATION
  Report Type: Spontaneous
  Country: DK (occurrence: DK)
  Receive Date: 20150105
  Receipt Date: 20150225
  Transmission Date: 20150720
  Serious: Yes (Other)
  Sender: FDA-Public Use
  Company Number: DK-JNJFOC-20141220242

PATIENT
  Age: 54 Year
  Sex: Male

DRUGS (5)
  1. INFLIXIMAB, RECOMBINANT [Suspect]
     Active Substance: INFLIXIMAB
     Indication: COLITIS ULCERATIVE
     Route: 042
     Dates: start: 20090825, end: 20091009
  2. MESALAZINE [Suspect]
     Active Substance: MESALAMINE
     Indication: COLITIS ULCERATIVE
     Dosage: 1G/ENEMA (IN PERIODS, FROM APPROXIMATELY 2010 WHEN NEEDED)
     Route: 048
     Dates: start: 20091112
  3. AZATHIOPRINE. [Suspect]
     Active Substance: AZATHIOPRINE
     Indication: COLITIS ULCERATIVE
     Dosage: DOSING FREQUENCY: FROM 150 MG X1 TO 200 MG X1
     Route: 048
     Dates: start: 20090824
  4. PREDNISOLONE. [Suspect]
     Active Substance: PREDNISOLONE
     Indication: COLITIS ULCERATIVE
     Dosage: DOSING FREQUENCY: FROM 30 MG X1 (WITH PHASE OUT 5MG/WEEK) TO 75 MG X1
     Route: 048
     Dates: start: 20090520
  5. MESALAZINE [Suspect]
     Active Substance: MESALAMINE
     Indication: COLITIS ULCERATIVE
     Dosage: DOSING FREQUENCY; FROM 400 MG X 2 TO 800 MG X 3
     Route: 048
     Dates: start: 20090507

REACTIONS (2)
  - Metastatic malignant melanoma [Recovering/Resolving]
  - Colitis ulcerative [Recovering/Resolving]

NARRATIVE: CASE EVENT DATE: 20100301
